FAERS Safety Report 22398433 (Version 1)
Quarter: 2023Q2

REPORT INFORMATION
  Report Type: Spontaneous
  Country: US (occurrence: US)
  Receive Date: 20230602
  Receipt Date: 20230602
  Transmission Date: 20230721
  Serious: Yes (Hospitalization, Other)
  Sender: FDA-Public Use
  Company Number: None

PATIENT
  Sex: Female

DRUGS (1)
  1. ATORVASTATIN CALCIUM [Suspect]
     Active Substance: ATORVASTATIN CALCIUM
     Indication: Acute myocardial infarction
     Dosage: UNK
     Route: 065

REACTIONS (4)
  - Hepatic steatosis [Recovering/Resolving]
  - Drug-induced liver injury [Recovering/Resolving]
  - Acute kidney injury [Unknown]
  - Off label use [Unknown]
